FAERS Safety Report 4590385-8 (Version None)
Quarter: 2005Q1

REPORT INFORMATION
  Report Type: 
  Country: None (occurrence: None)
  Receive Date: 20050224
  Receipt Date: 20041012
  Transmission Date: 20050727
  Serious: Yes (Hospitalization)
  Sender: FDA-Public Use
  Company Number: DE-MERCK-0410DEU00685

PATIENT
  Age: 46 Year
  Sex: Male
  Weight: 138 kg

DRUGS (3)
  1. VIOXX [Suspect]
     Indication: TENDON DISORDER
     Route: 048
     Dates: start: 20010628, end: 20031015
  2. VIOXX [Suspect]
     Indication: INTERCOSTAL NEURALGIA
     Route: 048
     Dates: start: 20010628, end: 20031015
  3. HYDROCHLOROTHIAZIDE AND METOPROLOL SUCCINATE [Concomitant]
     Route: 065
     Dates: start: 20010509, end: 20031031

REACTIONS (4)
  - CONDITION AGGRAVATED [None]
  - DEEP VEIN THROMBOSIS [None]
  - DIABETES MELLITUS NON-INSULIN-DEPENDENT [None]
  - HYPERTENSION [None]
